FAERS Safety Report 24467969 (Version 3)
Quarter: 2025Q4

REPORT INFORMATION
  Report Type: Spontaneous
  Country: US (occurrence: None)
  Receive Date: 20241018
  Receipt Date: 20251030
  Transmission Date: 20260118
  Serious: No
  Sender: UCB
  Company Number: US-UCBSA-2024029091

PATIENT
  Age: 58 Year

DRUGS (2)
  1. BIMZELX [Suspect]
     Active Substance: BIMEKIZUMAB-BKZX
     Indication: Psoriasis
     Dosage: 320 MILLIGRAM, EV 4 WEEKS INJECT 320MG (2 PENS) SUBCUTANEOUSLY AT WEEKS 0, 4, 8, 12 AND 16 AS DIRECTED
  2. BIMZELX [Suspect]
     Active Substance: BIMEKIZUMAB-BKZX
     Dosage: 320 MILLIGRAM, EV 4 WEEKS 9INJECT 320MG (2 PENS) SUBCUTANEOUSLY AT WEEKS 0, 4, 8, 12 AND 16 AS DIRECTED.)

REACTIONS (7)
  - Oropharyngeal pain [Recovered/Resolved]
  - Candida infection [Recovered/Resolved]
  - Tongue coated [Recovered/Resolved]
  - Dysphagia [Recovered/Resolved]
  - Localised infection [Unknown]
  - Female reproductive tract disorder [Unknown]
  - Sinusitis [Unknown]
